FAERS Safety Report 11762311 (Version 1)
Quarter: 2015Q4

REPORT INFORMATION
  Report Type: Spontaneous
  Country: FR (occurrence: FR)
  Receive Date: 20151120
  Receipt Date: 20151120
  Transmission Date: 20160304
  Serious: Yes (Hospitalization)
  Sender: FDA-Public Use
  Company Number: FR-ABBVIE-15P-056-1505576-00

PATIENT
  Sex: Male

DRUGS (1)
  1. DEPAKINE [Suspect]
     Active Substance: VALPROATE SODIUM
     Indication: MATERNAL EXPOSURE TIMING UNSPECIFIED
     Route: 064

REACTIONS (4)
  - Foetal anticonvulsant syndrome [Recovered/Resolved with Sequelae]
  - Joint laxity [Recovered/Resolved with Sequelae]
  - Foetal exposure during pregnancy [Unknown]
  - Learning disorder [Recovered/Resolved with Sequelae]

NARRATIVE: CASE EVENT DATE: 20101209
